FAERS Safety Report 9735285 (Version 2)
Quarter: 2013Q4

REPORT INFORMATION
  Report Type: Spontaneous
  Country: FR (occurrence: FR)
  Receive Date: 20131206
  Receipt Date: 20131216
  Transmission Date: 20140711
  Serious: Yes (Hospitalization)
  Sender: FDA-Public Use
  Company Number: FR-PFIZER INC-2013345255

PATIENT
  Age: 5 Year
  Sex: Male
  Weight: 29 kg

DRUGS (5)
  1. CELEBREX [Suspect]
     Dosage: 200 MG
     Route: 048
     Dates: start: 20130606
  2. METHOTREXATE SODIUM [Suspect]
     Dosage: 5 MG, 2X/WEEK DURING CYCLES OF 21 DAYS
     Route: 048
     Dates: start: 20130627
  3. ENDOXAN [Suspect]
     Dosage: 25 MG, 1X/DAY DURING CYCLES OF 21 DAYS
     Route: 048
     Dates: start: 20130606
  4. MINIRINMELT [Suspect]
     Dosage: 60 UG, 3X/DAY; 3 DF DAILY
     Route: 048
     Dates: start: 20130510
  5. VELBE [Suspect]
     Dosage: 10 MG, WEEKLY; 1 DF WEEKLY
     Route: 041
     Dates: start: 20130606

REACTIONS (2)
  - Hyponatraemia [Not Recovered/Not Resolved]
  - Convulsion [Unknown]
